FAERS Safety Report 8681972 (Version 2)
Quarter: 2012Q4

REPORT INFORMATION
  Report Type: Report from Study
  Country: JP (occurrence: JP)
  Receive Date: 20120725
  Receipt Date: 20120830
  Transmission Date: 20130627
  Serious: Yes (Death, Hospitalization)
  Sender: FDA-Public Use
  Company Number: JP-ROCHE-734934

PATIENT
  Age: 61 Year
  Sex: Male
  Weight: 63 kg

DRUGS (22)
  1. AVASTIN [Suspect]
     Indication: LUNG ADENOCARCINOMA RECURRENT
     Route: 041
     Dates: start: 20100224, end: 20100224
  2. AVASTIN [Suspect]
     Route: 041
     Dates: start: 20100317, end: 20100317
  3. AVASTIN [Suspect]
     Route: 041
     Dates: start: 20100407, end: 20100407
  4. AVASTIN [Suspect]
     Route: 041
     Dates: start: 20100428, end: 20100428
  5. AVASTIN [Suspect]
     Route: 041
     Dates: start: 20100524, end: 20100524
  6. AVASTIN [Suspect]
     Route: 041
     Dates: start: 20100614, end: 20100614
  7. AVASTIN [Suspect]
     Route: 041
     Dates: start: 20100716, end: 20100716
  8. AVASTIN [Suspect]
     Route: 041
     Dates: start: 20100809, end: 20100809
  9. CARBOPLATIN [Concomitant]
     Dosage: DOSAGE IS UNCERTAIN.
     Route: 041
     Dates: start: 20100224, end: 20100224
  10. CARBOPLATIN [Concomitant]
     Dosage: NOTE: DOSAGE IS UNCERTAIN.
     Route: 041
     Dates: start: 20100317, end: 20100317
  11. CARBOPLATIN [Concomitant]
     Dosage: NOTE: DOSAGE IS UNCERTAIN.
     Route: 041
     Dates: start: 20100407, end: 20100407
  12. CARBOPLATIN [Concomitant]
     Dosage: NOTE: DOSAGE IS UNCERTAIN.
     Route: 041
     Dates: start: 20100428, end: 20100428
  13. PACLITAXEL [Concomitant]
     Dosage: DOSAGE IS UNCERTAIN.
     Route: 041
     Dates: start: 20100224, end: 20100224
  14. PACLITAXEL [Concomitant]
     Dosage: NOTE: DOSAGE IS UNCERTAIN.
     Route: 041
     Dates: start: 20100317, end: 20100317
  15. PACLITAXEL [Concomitant]
     Dosage: NOTE: DOSAGE IS UNCERTAIN.
     Route: 041
     Dates: start: 20100407, end: 20100407
  16. PACLITAXEL [Concomitant]
     Dosage: NOTE: DOSAGE IS UNCERTAIN.
     Route: 041
     Dates: start: 20100428, end: 20100428
  17. GLUCOBAY [Concomitant]
     Indication: DIABETES MELLITUS
     Route: 048
  18. NOVORAPID [Concomitant]
     Indication: DIABETES MELLITUS
     Dosage: NOVORAPID(INSULIN ASPART(GENETICAL RECOMBINATION))
     Route: 058
  19. RESTAMIN [Concomitant]
     Dosage: RESTAMIN(DIPHENHYDRAMINE HYDROCHLORIDE).
DOSE FORM: PERORAL AGENT.
     Route: 048
     Dates: start: 20100224, end: 20100428
  20. GASTER [Concomitant]
     Dosage: DOSE FORM: PERORAL AGENT
     Route: 048
     Dates: start: 20100224, end: 20100428
  21. DEXART [Concomitant]
     Indication: PROPHYLAXIS OF NAUSEA AND VOMITING
     Route: 041
     Dates: start: 20100224, end: 20100428
  22. NASEA [Concomitant]
     Indication: PROPHYLAXIS OF NAUSEA AND VOMITING
     Dosage: NASEA(RAMOSETRON HYDROCHLORIDE)
     Route: 041
     Dates: start: 20100224, end: 20100428

REACTIONS (2)
  - Disease progression [Fatal]
  - Haemoptysis [Recovered/Resolved]
